FAERS Safety Report 20063985 (Version 3)
Quarter: 2022Q1

REPORT INFORMATION
  Report Type: Report from Study
  Country: US (occurrence: US)
  Receive Date: 20211112
  Receipt Date: 20220117
  Transmission Date: 20220423
  Serious: Yes (Hospitalization)
  Sender: FDA-Public Use
  Company Number: US-BIOGEN-2021BI01065411

PATIENT
  Age: 33 Year
  Sex: Female

DRUGS (1)
  1. TYSABRI [Suspect]
     Active Substance: NATALIZUMAB
     Indication: Multiple sclerosis
     Route: 042
     Dates: start: 20120523, end: 20210701

REACTIONS (3)
  - Multiple sclerosis relapse [Recovered/Resolved]
  - Impaired self-care [Recovered/Resolved]
  - Escherichia urinary tract infection [Unknown]

NARRATIVE: CASE EVENT DATE: 20210924
